FAERS Safety Report 8142239 (Version 3)
Quarter: 2020Q3

REPORT INFORMATION
  Report Type: Report from Study
  Country: None (occurrence: FR)
  Receive Date: 20110919
  Receipt Date: 20111010
  Transmission Date: 20201105
  Serious: Yes (Hospitalization)
  Sender: FDA-Public Use
  Company Number: FR-ROCHE-802145

PATIENT
  Age: 48 Year
  Sex: Female
  Weight: 63.5 kg

DRUGS (18)
  1. DANOPREVIR. [Suspect]
     Active Substance: DANOPREVIR
     Indication: HEPATITIS C
     Dosage: LAST DOSE PRIOR TO SAE 23 JUNE 2011 FREQUENCY: DAILY
     Route: 048
  2. ESCITALOPRAM OXALATE. [Concomitant]
     Active Substance: ESCITALOPRAM OXALATE
  3. DOMPERIDONE [Concomitant]
     Active Substance: DOMPERIDONE
  4. DESLORATADINE. [Concomitant]
     Active Substance: DESLORATADINE
  5. PRONTALGINE [AMOBARBITAL;CAFFEINE;CODEINE PHOSPHATE;PARACETAMOL] [Concomitant]
     Active Substance: ACETAMINOPHEN\AMOBARBITAL\CAFFEINE\CODEINE PHOSPHATE
     Dosage: TOTAL DAILY DOSE: 1 TABLET
  6. EPOETIN BETA [Concomitant]
     Active Substance: ERYTHROPOIETIN
     Dosage: 30000 UI/WEEK
  7. BROMAZEPAM [Concomitant]
     Active Substance: BROMAZEPAM
     Dosage: 3 MG AS NEEDED
  8. COPEGUS [Suspect]
     Active Substance: RIBAVIRIN
     Indication: HEPATITIS C
     Dosage: FREQUENCY: DAILY. LAST DOSE PRIOR TO SAE 23 JUNE 2011
     Route: 048
  9. OLMESARTAN MEDOXOMIL. [Concomitant]
     Active Substance: OLMESARTAN MEDOXOMIL
  10. ESOMEPRAZOLE. [Concomitant]
     Active Substance: ESOMEPRAZOLE MAGNESIUM
     Dosage: FREQ: AS NEEDED
  11. PEGINTERFERON ALFA?2A. [Suspect]
     Active Substance: PEGINTERFERON ALFA-2A
     Indication: HEPATITIS C
     Dosage: DOSE FORM: VIALS. LAST DOSE PRIOR TO SAE 21 JUNE 2011. FREQUENCY: WEEKLY
     Route: 058
  12. ZOPICLONE [Concomitant]
     Active Substance: ZOPICLONE
  13. RITONAVIR. [Suspect]
     Active Substance: RITONAVIR
     Indication: HEPATITIS C
     Dosage: LAST DOSE PRIOR TO SAE 23 JUNE 2011 FREQUENCY :DAILY
     Route: 048
  14. LERCANIDIPINE [Concomitant]
     Active Substance: LERCANIDIPINE
  15. COLD MEDICATION NOS [Concomitant]
     Active Substance: UNSPECIFIED INGREDIENT
     Dosage: TOTAL DAILY DOSE 3 APPL
  16. ACETAMINOPHEN. [Concomitant]
     Active Substance: ACETAMINOPHEN
  17. EPOETIN BETA [Concomitant]
     Active Substance: ERYTHROPOIETIN
     Dosage: TDD: 6000
  18. ERYTHROMYCIN. [Concomitant]
     Active Substance: ERYTHROMYCIN
     Dosage: TOTAL DAILY DOSE: 3 APPL

REACTIONS (1)
  - Depression [Recovered/Resolved]

NARRATIVE: CASE EVENT DATE: 20110909
